FAERS Safety Report 8813747 (Version 2)
Quarter: 2012Q4

REPORT INFORMATION
  Report Type: 
  Country: JP (occurrence: JP)
  Receive Date: 20120928
  Receipt Date: 20121107
  Transmission Date: 20130627
  Serious: Yes (Hospitalization, Other)
  Sender: FDA-Public Use
  Company Number: JP-ROCHE-1100068

PATIENT
  Age: 34 Year
  Sex: Male
  Weight: 90 kg

DRUGS (6)
  1. VESANOID [Suspect]
     Indication: ACUTE PROMYELOCYTIC LEUKAEMIA
     Route: 048
     Dates: start: 20120627, end: 20120721
  2. VESANOID [Suspect]
     Indication: ACUTE PROMYELOCYTIC LEUKAEMIA
     Route: 048
     Dates: start: 20120725, end: 20120802
  3. ITRIZOLE [Concomitant]
     Route: 048
     Dates: start: 20120627
  4. ZYLORIC [Concomitant]
     Route: 048
     Dates: start: 20120627
  5. TAKEPRON [Concomitant]
     Route: 048
     Dates: start: 20120627
  6. BAKTAR [Concomitant]
     Dosage: Administering twice twice/week of day
     Route: 048

REACTIONS (8)
  - Retinoic acid syndrome [Recovered/Resolved]
  - Pyrexia [Recovered/Resolved]
  - Dyspnoea [Recovered/Resolved]
  - Stomatitis [Recovering/Resolving]
  - Mucous membrane disorder [Recovering/Resolving]
  - Retinoic acid syndrome [Recovering/Resolving]
  - Gastrointestinal perforation [Recovering/Resolving]
  - Mucous membrane disorder [Recovering/Resolving]
